FAERS Safety Report 4405011-8 (Version None)
Quarter: 2004Q3

REPORT INFORMATION
  Report Type: 
  Country: None (occurrence: None)
  Receive Date: 20040716
  Receipt Date: 20040707
  Transmission Date: 20050211
  Serious: Yes (Death, Hospitalization)
  Sender: FDA-Public Use
  Company Number: US-JNJFOC-20040702092

PATIENT
  Age: 40 Year
  Sex: Female

DRUGS (1)
  1. REMICADE [Suspect]
     Indication: CROHN'S DISEASE
     Dosage: SEE IMAGE INTRAVENOUS
     Route: 042
     Dates: start: 20040301

REACTIONS (3)
  - CARDIAC FAILURE [None]
  - SERUM SICKNESS [None]
  - SMALL INTESTINAL OBSTRUCTION [None]
